FAERS Safety Report 7641192-0 (Version None)
Quarter: 2011Q3

REPORT INFORMATION
  Report Type: 
  Country: None (occurrence: None)
  Receive Date: 20110728
  Receipt Date: 20110718
  Transmission Date: 20111222
  Serious: Yes (Other)
  Sender: FDA-Public Use
  Company Number: PHHY2011AU58694

PATIENT
  Sex: Female

DRUGS (7)
  1. FLAREX [Concomitant]
     Indication: CORNEAL INFILTRATES
     Dosage: UNK GTT, QID
     Dates: start: 20110407, end: 20110415
  2. CHLORSIG [Concomitant]
     Indication: PROPHYLAXIS
     Dosage: UNK GTT, QID
  3. XALATAN [Concomitant]
     Indication: INTRAOCULAR PRESSURE INCREASED
     Dosage: UNK GTT, QHS
     Dates: start: 20110506, end: 20110606
  4. REFRESH PLUS [Concomitant]
     Indication: DRY EYE
     Dosage: 6-8 TIMES GTT, QD
     Dates: start: 20110317, end: 20110518
  5. CARMELLOSE SODIUM [Concomitant]
     Indication: DRY EYE
     Dosage: UNK GTT, 8QD
     Dates: start: 20110518
  6. GENTEAL [Suspect]
     Indication: DRY EYE
     Dosage: UNK UKN, QHS
     Dates: start: 20110418
  7. STEROIDS NOS [Concomitant]
     Indication: CORNEAL INFILTRATES
     Dosage: UNK GTT, QID
     Dates: start: 20110305, end: 20110317

REACTIONS (3)
  - BLEPHARITIS [None]
  - INTRAOCULAR PRESSURE INCREASED [None]
  - EYE PAIN [None]
